FAERS Safety Report 5819956-5 (Version None)
Quarter: 2008Q3

REPORT INFORMATION
  Report Type: 
  Country: None (occurrence: None)
  Receive Date: 20080721
  Receipt Date: 20080708
  Transmission Date: 20090109
  Serious: Yes (Hospitalization, Disabling)
  Sender: FDA-Public Use
  Company Number: 2008AL003874

PATIENT
  Age: 43 Year
  Sex: Male
  Weight: 204.1187 kg

DRUGS (8)
  1. DIGOXIN [Suspect]
     Indication: CARDIAC DISORDER
     Dosage: 0.25MG DAILY PO;   LONG TIME
     Route: 048
  2. FUROSEMIDE [Concomitant]
  3. ASPIRIN [Concomitant]
  4. LISINOPRIL [Concomitant]
  5. ZOCOR [Concomitant]
  6. LORATADINE [Concomitant]
  7. LEVOTHYROXINE SODIUM [Concomitant]
  8. DOCULACE [Concomitant]

REACTIONS (6)
  - ARRHYTHMIA [None]
  - DIZZINESS [None]
  - HEART RATE INCREASED [None]
  - HYPOTENSION [None]
  - LOSS OF CONSCIOUSNESS [None]
  - MULTI-ORGAN FAILURE [None]
